FAERS Safety Report 7111300-9 (Version None)
Quarter: 2010Q4

REPORT INFORMATION
  Report Type: 
  Country: None (occurrence: None)
  Receive Date: 20101118
  Receipt Date: 20101110
  Transmission Date: 20110411
  Serious: No
  Sender: FDA-Public Use
  Company Number: US-B.I. PHARMACEUTICALS,INC./RIDGEFIELD-2010-BP-12675BP

PATIENT
  Sex: Female

DRUGS (10)
  1. SPIRIVA [Suspect]
     Indication: CHRONIC OBSTRUCTIVE PULMONARY DISEASE
     Dosage: 18 MCG
     Route: 055
     Dates: start: 20101031
  2. TENORMIN [Concomitant]
     Indication: HYPERTENSION
     Route: 048
  3. ALDACTONE [Concomitant]
     Indication: HYPERTENSION
     Route: 048
  4. COZAAR [Concomitant]
     Indication: HYPERTENSION
     Route: 048
  5. DEPAKOTE [Concomitant]
     Indication: BIPOLAR DISORDER
     Route: 048
  6. LEXAPRO [Concomitant]
     Indication: BIPOLAR DISORDER
     Route: 048
  7. RANITIDINE [Concomitant]
     Indication: GASTROOESOPHAGEAL REFLUX DISEASE
     Route: 048
  8. MIRAPEX [Concomitant]
     Indication: RESTLESS LEGS SYNDROME
     Route: 048
  9. ASPIRIN [Concomitant]
     Indication: PROPHYLAXIS
     Dosage: 81 MG
     Route: 048
  10. ALBUTEROL [Concomitant]
     Indication: CHRONIC OBSTRUCTIVE PULMONARY DISEASE
     Route: 055

REACTIONS (4)
  - CHOKING [None]
  - COUGH [None]
  - DRY MOUTH [None]
  - DYSPHONIA [None]
